FAERS Safety Report 6507349-7 (Version None)
Quarter: 2009Q4

REPORT INFORMATION
  Report Type: 
  Country: None (occurrence: None)
  Receive Date: 20091221
  Receipt Date: 20091209
  Transmission Date: 20100525
  Serious: Yes (Other)
  Sender: FDA-Public Use
  Company Number: ZA-PFIZER INC-2009305256

PATIENT
  Age: 8 Month

DRUGS (2)
  1. VFEND [Suspect]
     Indication: SYSTEMIC CANDIDA
     Dosage: UNK
     Dates: start: 20091202
  2. MYCOSTATIN [Concomitant]
     Dosage: UNK

REACTIONS (5)
  - ATRIOVENTRICULAR BLOCK SECOND DEGREE [None]
  - BLOOD GLUCOSE DECREASED [None]
  - GALLBLADDER NON-FUNCTIONING [None]
  - GASTRIC HYPOMOTILITY [None]
  - VOMITING [None]
